FAERS Safety Report 13592091 (Version 1)
Quarter: 2017Q2

REPORT INFORMATION
  Report Type: Spontaneous
  Country: JP (occurrence: JP)
  Receive Date: 20170530
  Receipt Date: 20170530
  Transmission Date: 20170830
  Serious: Yes (Death)
  Sender: FDA-Public Use
  Company Number: JP-OTSUKA-2017_005441

PATIENT
  Age: 86 Year
  Sex: Female
  Weight: 37 kg

DRUGS (3)
  1. SAMSCA [Suspect]
     Active Substance: TOLVAPTAN
     Dosage: 0.5 DF, QD
     Route: 048
     Dates: start: 20170210, end: 20170301
  2. SAMSCA [Suspect]
     Active Substance: TOLVAPTAN
     Dosage: 0.5 DF, QD
     Route: 048
     Dates: start: 20170303, end: 20170306
  3. SAMSCA [Suspect]
     Active Substance: TOLVAPTAN
     Indication: CARDIAC FAILURE CONGESTIVE
     Dosage: 1 DF, QD
     Route: 048
     Dates: start: 20170131, end: 20170209

REACTIONS (5)
  - Gamma-glutamyltransferase increased [Not Recovered/Not Resolved]
  - Aspartate aminotransferase abnormal [Unknown]
  - Blood alkaline phosphatase increased [Not Recovered/Not Resolved]
  - Cardiac failure [Fatal]
  - Alanine aminotransferase abnormal [Unknown]

NARRATIVE: CASE EVENT DATE: 20170206
